FAERS Safety Report 20716782 (Version 1)
Quarter: 2022Q2

REPORT INFORMATION
  Report Type: Spontaneous
  Country: FR (occurrence: FR)
  Receive Date: 20220416
  Receipt Date: 20220416
  Transmission Date: 20220721
  Serious: Yes (Death, Hospitalization, Other)
  Sender: FDA-Public Use
  Company Number: FR-AFSSAPS-NY20180168

PATIENT
  Age: 19 Year
  Sex: Female

DRUGS (11)
  1. ARIPIPRAZOLE [Suspect]
     Active Substance: ARIPIPRAZOLE
     Indication: Psychiatric decompensation
     Dosage: 1 DOSAGE FORM (UNK)
     Route: 030
     Dates: start: 20171206, end: 20171206
  2. OLANZAPINE [Suspect]
     Active Substance: OLANZAPINE
     Indication: Psychiatric decompensation
     Dosage: UNK
     Route: 048
     Dates: start: 20171220, end: 20171227
  3. DIAZEPAM [Suspect]
     Active Substance: DIAZEPAM
     Indication: Psychiatric decompensation
     Dosage: UNK
     Route: 048
     Dates: start: 20171219, end: 20171227
  4. VALPROATE SODIUM [Suspect]
     Active Substance: VALPROATE SODIUM
     Indication: Psychiatric decompensation
     Dosage: UNK
     Route: 048
     Dates: start: 20171220, end: 20171223
  5. FLUPENTIXOL [Suspect]
     Active Substance: FLUPENTIXOL
     Indication: Psychiatric decompensation
     Dosage: UNK
     Route: 048
     Dates: start: 20171219, end: 20171227
  6. ZOLPIDEM TARTRATE [Suspect]
     Active Substance: ZOLPIDEM TARTRATE
     Indication: Psychiatric decompensation
     Dosage: UNK
     Route: 048
     Dates: start: 20171219, end: 20171227
  7. TRIMEPRAZINE [Suspect]
     Active Substance: TRIMEPRAZINE
     Indication: Psychiatric decompensation
     Dosage: UNK
     Route: 048
     Dates: start: 20171219, end: 20171227
  8. IMODIUM [Concomitant]
     Active Substance: LOPERAMIDE HYDROCHLORIDE
     Indication: Product used for unknown indication
     Dosage: 2 MILLIGRAM, ONCE A DAY
     Route: 048
     Dates: start: 20171220, end: 20171220
  9. SPREGAL [Concomitant]
     Active Substance: PIPERONYL BUTOXIDE\S-BIOALLETHRIN
     Indication: Product used for unknown indication
     Dosage: 1 DOSAGE FORM (UNK)
     Route: 003
     Dates: start: 20171219, end: 20171219
  10. Ascabiol [Concomitant]
     Indication: Product used for unknown indication
     Dosage: 1 DOSAGE FORM (UNK)
     Route: 003
     Dates: start: 20171219, end: 20171219
  11. LOXAPINE [Concomitant]
     Active Substance: LOXAPINE
     Indication: Product used for unknown indication
     Dosage: 4 DOSAGE FORM (UNK)
     Route: 030
     Dates: start: 20171219, end: 20171219

REACTIONS (1)
  - Cardio-respiratory arrest [Fatal]

NARRATIVE: CASE EVENT DATE: 20171227
